FAERS Safety Report 13542491 (Version 1)
Quarter: 2017Q2

REPORT INFORMATION
  Report Type: Spontaneous
  Country: US (occurrence: US)
  Receive Date: 20170512
  Receipt Date: 20170512
  Transmission Date: 20170830
  Serious: No
  Sender: FDA-Public Use
  Company Number: US-ROCHE-696325

PATIENT
  Sex: Female

DRUGS (2)
  1. TAXANE NOS [Concomitant]
     Active Substance: UNSPECIFIED INGREDIENT
     Dosage: DRUG: TAXANE
     Route: 065
  2. AVASTIN [Suspect]
     Active Substance: BEVACIZUMAB
     Indication: BREAST CANCER
     Route: 065

REACTIONS (1)
  - Upper limb fracture [Unknown]
